FAERS Safety Report 7827288-9 (Version None)
Quarter: 2011Q4

REPORT INFORMATION
  Report Type: 
  Country: None (occurrence: None)
  Receive Date: 20111020
  Receipt Date: 20111014
  Transmission Date: 20120403
  Serious: Yes (Hospitalization)
  Sender: FDA-Public Use
  Company Number: GB-PFIZER INC-2011247686

PATIENT
  Age: 76 Year
  Sex: Male
  Weight: 99.1 kg

DRUGS (2)
  1. SUNITINIB MALATE [Suspect]
     Indication: MALIGNANT MELANOMA
     Dosage: 50 MG, 1X/DAY
     Route: 048
     Dates: start: 20110823, end: 20110909
  2. SUNITINIB MALATE [Suspect]
     Dosage: 50 MG, 1X/DAY
     Route: 048
     Dates: start: 20110913

REACTIONS (1)
  - MALAISE [None]
